FAERS Safety Report 5694038-4 (Version None)
Quarter: 2008Q2

REPORT INFORMATION
  Report Type: 
  Country: None (occurrence: None)
  Receive Date: 20080403
  Receipt Date: 20080331
  Transmission Date: 20081010
  Serious: Yes (Other)
  Sender: FDA-Public Use
  Company Number: US-MERCK-0601USA02819

PATIENT
  Age: 73 Year
  Sex: Male
  Weight: 81 kg

DRUGS (6)
  1. NAPROSYN [Concomitant]
     Route: 065
  2. ULTRAM [Concomitant]
     Route: 065
  3. LESCOL [Concomitant]
     Route: 065
  4. VITAMINS (UNSPECIFIED) [Concomitant]
     Route: 065
  5. ZETIA [Concomitant]
     Route: 048
  6. VYTORIN [Suspect]
     Route: 048
     Dates: start: 20051011

REACTIONS (2)
  - ANGIOPATHY [None]
  - BLINDNESS UNILATERAL [None]
